FAERS Safety Report 17837192 (Version 2)
Quarter: 2020Q2

REPORT INFORMATION
  Report Type: Spontaneous
  Country: US (occurrence: US)
  Receive Date: 20200529
  Receipt Date: 20200628
  Transmission Date: 20200714
  Serious: No
  Sender: FDA-Public Use
  Company Number: US-JNJFOC-20200516142

PATIENT
  Age: 61 Year
  Sex: Female

DRUGS (3)
  1. LIOTHYRONIN [Concomitant]
     Active Substance: LIOTHYRONINE SODIUM
     Indication: THYROID DISORDER
     Route: 065
  2. WOMENS ROGAINE UNSCENTED [Suspect]
     Active Substance: MINOXIDIL
     Indication: NON-SCARRING ALOPECIA
     Route: 061
     Dates: start: 20200510, end: 20200511
  3. LEVOTHYROXINE. [Concomitant]
     Active Substance: LEVOTHYROXINE
     Indication: THYROID DISORDER
     Route: 065

REACTIONS (4)
  - Hypersensitivity [Recovered/Resolved]
  - Product use in unapproved indication [Unknown]
  - Overdose [Unknown]
  - Off label use [Unknown]

NARRATIVE: CASE EVENT DATE: 20200510
